FAERS Safety Report 5369887-2 (Version None)
Quarter: 2007Q2

REPORT INFORMATION
  Report Type: 
  Country: None (occurrence: None)
  Receive Date: 20070621
  Receipt Date: 20070611
  Transmission Date: 20071010
  Serious: Yes (Life-Threatening, Hospitalization, Other)
  Sender: FDA-Public Use
  Company Number: 430002L07ISR

PATIENT
  Age: 29 Year
  Sex: Male

DRUGS (3)
  1. MITOXANGTRONE HYDROCHLORIDE (MITOXANTRONE HYDROCHLORIDE) [Suspect]
     Indication: ACUTE MYELOID LEUKAEMIA
  2. ARSENIC TRIOXIDE [Suspect]
     Indication: ACUTE MYELOID LEUKAEMIA
     Dosage: 20 MG, 1 IN 1 DAYS
  3. IDARURICIN [Suspect]
     Indication: ACUTE MYELOID LEUKAEMIA

REACTIONS (11)
  - ACUTE MYELOID LEUKAEMIA [None]
  - BLOOD POTASSIUM DECREASED [None]
  - CAPILLARY LEAK SYNDROME [None]
  - DISEASE PROGRESSION [None]
  - FLUID OVERLOAD [None]
  - LEUKOCYTOSIS [None]
  - LUNG INFILTRATION [None]
  - POLYNEUROPATHY [None]
  - RESPIRATORY DISTRESS [None]
  - TORSADE DE POINTES [None]
  - VENTRICULAR EXTRASYSTOLES [None]
